FAERS Safety Report 4649763-0 (Version None)
Quarter: 2005Q2

REPORT INFORMATION
  Report Type: 
  Country: None (occurrence: None)
  Receive Date: 20050502
  Receipt Date: 20050318
  Transmission Date: 20051028
  Serious: No
  Sender: FDA-Public Use
  Company Number: CH-AMGEN-UK121690

PATIENT
  Sex: Male
  Weight: 77 kg

DRUGS (8)
  1. ARANESP [Suspect]
     Indication: ANAEMIA OF MALIGNANT DISEASE
     Route: 058
     Dates: start: 20041126
  2. AMARYL [Concomitant]
  3. CARBOPLATIN [Concomitant]
     Route: 042
     Dates: start: 20041126
  4. GEMCITABINE [Concomitant]
     Route: 042
     Dates: start: 20041126
  5. FORTECORTIN [Concomitant]
     Route: 048
     Dates: start: 20041126
  6. GLUCOPHAGE [Concomitant]
     Route: 048
  7. NEXIUM [Concomitant]
     Route: 048
  8. ESCITALOPRAM [Concomitant]

REACTIONS (2)
  - BONE PAIN [None]
  - MYALGIA [None]
